FAERS Safety Report 4302606-7 (Version None)
Quarter: 2004Q1

REPORT INFORMATION
  Report Type: 
  Country: None (occurrence: None)
  Receive Date: 20040220
  Receipt Date: 20040112
  Transmission Date: 20041129
  Serious: No
  Sender: FDA-Public Use
  Company Number: 7103

PATIENT
  Age: 47 Year
  Sex: Female

DRUGS (2)
  1. DOXYCYCLINE HYDROCHLORIDE [Suspect]
     Indication: UPPER RESPIRATORY TRACT INFECTION
     Dosage: 100 MG, PO
     Route: 048
     Dates: start: 20031223, end: 20040105
  2. THYROXINE SODIUM [Concomitant]

REACTIONS (7)
  - ABDOMINAL DISCOMFORT [None]
  - ABNORMAL FAECES [None]
  - HAEMATOCHEZIA [None]
  - HYPOTHYROIDISM [None]
  - LOOSE STOOLS [None]
  - NAUSEA [None]
  - VOMITING [None]
